FAERS Safety Report 25168966 (Version 3)
Quarter: 2025Q3

REPORT INFORMATION
  Report Type: Spontaneous
  Country: US (occurrence: US)
  Receive Date: 20250407
  Receipt Date: 20250813
  Transmission Date: 20251020
  Serious: No
  Sender: BRISTOL-MYERS SQUIBB COMPANY
  Company Number: US-BRISTOL-MYERS SQUIBB COMPANY-2025-045739

PATIENT
  Age: 63 Year
  Sex: Female

DRUGS (1)
  1. POMALYST [Suspect]
     Active Substance: POMALIDOMIDE
     Indication: Plasma cell myeloma
     Route: 048

REACTIONS (10)
  - Illness [Unknown]
  - Pruritus [Unknown]
  - Influenza like illness [Unknown]
  - Dizziness [Unknown]
  - Visual impairment [Unknown]
  - Muscle spasms [Unknown]
  - Asthenia [Unknown]
  - Aphasia [Unknown]
  - Movement disorder [Unknown]
  - Rash [Unknown]

NARRATIVE: CASE EVENT DATE: 20250321
